FAERS Safety Report 7451481-0 (Version None)
Quarter: 2011Q2

REPORT INFORMATION
  Report Type: 
  Country: None (occurrence: None)
  Receive Date: 20110502
  Receipt Date: 20110422
  Transmission Date: 20111010
  Serious: Yes (Hospitalization)
  Sender: FDA-Public Use
  Company Number: US-ASTRAZENECA-2011SE23491

PATIENT
  Age: 42 Year
  Sex: Male

DRUGS (1)
  1. SEROQUEL [Suspect]
     Indication: BIPOLAR DISORDER
     Route: 048
     Dates: start: 20060101, end: 20110201

REACTIONS (8)
  - HYPERPHAGIA [None]
  - ROAD TRAFFIC ACCIDENT [None]
  - DIABETES MELLITUS [None]
  - PAIN [None]
  - WEIGHT INCREASED [None]
  - DRUG INEFFECTIVE [None]
  - APATHY [None]
  - HYPERTENSION [None]
